FAERS Safety Report 7001130-0 (Version None)
Quarter: 2010Q3

REPORT INFORMATION
  Report Type: 
  Country: None (occurrence: None)
  Receive Date: 20100920
  Receipt Date: 20100910
  Transmission Date: 20110219
  Serious: Yes (Other)
  Sender: FDA-Public Use
  Company Number: PHHY2009JP21463

PATIENT
  Sex: Female

DRUGS (3)
  1. TASIGNA [Suspect]
     Indication: CHRONIC MYELOID LEUKAEMIA
     Dosage: 800 MG
     Route: 048
     Dates: start: 20090514, end: 20090610
  2. TASIGNA [Suspect]
     Dosage: 800 MG, QD
     Route: 048
     Dates: start: 20100211, end: 20100324
  3. MYTEAR [Concomitant]
     Indication: LACRIMATION INCREASED
     Dosage: UNK
     Route: 047
     Dates: start: 20090514, end: 20090527

REACTIONS (4)
  - BLOOD ALKALINE PHOSPHATASE INCREASED [None]
  - BLOOD BILIRUBIN INCREASED [None]
  - PLATELET COUNT DECREASED [None]
  - RASH [None]
